FAERS Safety Report 16984697 (Version 1)
Quarter: 2019Q4

REPORT INFORMATION
  Report Type: Spontaneous
  Country: US (occurrence: US)
  Receive Date: 20191101
  Receipt Date: 20191101
  Transmission Date: 20200122
  Serious: No
  Sender: FDA-Public Use
  Company Number: US-PERRIGO-19US007477

PATIENT
  Age: 76 Year
  Sex: Female

DRUGS (3)
  1. CICLOPIROX. [Suspect]
     Active Substance: CICLOPIROX
     Dosage: UNKNOWN, UNKNOWN
     Route: 061
     Dates: start: 201804
  2. CICLOPIROX. [Suspect]
     Active Substance: CICLOPIROX
     Indication: PRODUCT USED FOR UNKNOWN INDICATION
     Dosage: UNKNOWN, UNKNOWN
     Route: 061
     Dates: start: 201804, end: 2019
  3. CICLOPIROX. [Suspect]
     Active Substance: CICLOPIROX
     Dosage: UNKNOWN, UNKNOWN
     Route: 061
     Dates: start: 2019, end: 201906

REACTIONS (1)
  - Nail discolouration [Unknown]

NARRATIVE: CASE EVENT DATE: 2019
